FAERS Safety Report 6503481-2 (Version None)
Quarter: 2009Q4

REPORT INFORMATION
  Report Type: 
  Country: None (occurrence: None)
  Receive Date: 20091217
  Receipt Date: 20091211
  Transmission Date: 20100525
  Serious: Yes (Death, Life-Threatening)
  Sender: FDA-Public Use
  Company Number: JP-BAYER-200913321BYL

PATIENT
  Age: 69 Year
  Sex: Male
  Weight: 59 kg

DRUGS (9)
  1. NEXAVAR [Suspect]
     Indication: HEPATIC NEOPLASM MALIGNANT
     Dosage: TOTAL DAILY DOSE: 800 MG  UNIT DOSE: 200 MG
     Route: 048
     Dates: start: 20090715, end: 20090729
  2. NEXAVAR [Suspect]
     Dosage: UNIT DOSE: 200 MG
     Route: 048
     Dates: start: 20090730, end: 20090813
  3. RESLIN [Concomitant]
     Route: 048
     Dates: start: 20071114, end: 20090905
  4. URSO 250 [Concomitant]
     Route: 048
     Dates: start: 20071212, end: 20090905
  5. ZYLORIC [Concomitant]
     Route: 048
     Dates: start: 20080207, end: 20090905
  6. MYSLEE [Concomitant]
     Route: 048
     Dates: start: 20080910, end: 20090905
  7. DUROTEP [Concomitant]
     Route: 062
     Dates: start: 20090710, end: 20090907
  8. TRYPTANOL [Concomitant]
     Route: 048
     Dates: start: 20090815, end: 20090905
  9. OMEPRAL [Concomitant]
     Route: 048
     Dates: start: 20090522, end: 20090905

REACTIONS (5)
  - DIARRHOEA [None]
  - GASTROINTESTINAL HAEMORRHAGE [None]
  - PLATELET COUNT DECREASED [None]
  - PNEUMONIA [None]
  - WHITE BLOOD CELL COUNT DECREASED [None]
